FAERS Safety Report 13137784 (Version 4)
Quarter: 2017Q1

REPORT INFORMATION
  Report Type: Spontaneous
  Country: US (occurrence: US)
  Receive Date: 20170123
  Receipt Date: 20170123
  Transmission Date: 20170428
  Serious: No
  Sender: FDA-Public Use
  Company Number: US-UNITED THERAPEUTICS-UNT-2016-013021

PATIENT
  Age: 70 Year
  Sex: Female
  Weight: 54.42 kg

DRUGS (2)
  1. TYVASO [Suspect]
     Active Substance: TREPROSTINIL
     Dosage: UNK
  2. TYVASO [Suspect]
     Active Substance: TREPROSTINIL
     Indication: PULMONARY ARTERIAL HYPERTENSION
     Dosage: 18-54 MICROGRAMS, QID
     Dates: start: 20160808

REACTIONS (8)
  - Dizziness [Unknown]
  - Sneezing [Unknown]
  - Dyspnoea [Recovering/Resolving]
  - Hyperhidrosis [Unknown]
  - Tremor [Unknown]
  - Rhinorrhoea [Unknown]
  - Headache [Recovered/Resolved]
  - Cough [Unknown]

NARRATIVE: CASE EVENT DATE: 201608
